FAERS Safety Report 8159425-3 (Version None)
Quarter: 2012Q1

REPORT INFORMATION
  Report Type: 
  Country: None (occurrence: None)
  Receive Date: 20120223
  Receipt Date: 20120216
  Transmission Date: 20120608
  Serious: Yes (Other)
  Sender: FDA-Public Use
  Company Number: JP-PFIZER INC-2011266365

PATIENT
  Age: 45 Year
  Sex: Female
  Weight: 47 kg

DRUGS (3)
  1. VFEND [Suspect]
     Indication: ASPERGILLOSIS
     Dosage: 200 MG, 2X/DAY
     Route: 048
     Dates: start: 20090818, end: 20091114
  2. ITRACONAZOLE [Suspect]
     Dosage: UNK
  3. BORTEZOMIB [Suspect]
     Dosage: UNK

REACTIONS (1)
  - NEUROPATHY PERIPHERAL [None]
